FAERS Safety Report 12321629 (Version 4)
Quarter: 2016Q2

REPORT INFORMATION
  Report Type: Report from Study
  Country: US (occurrence: US)
  Receive Date: 20160502
  Receipt Date: 20160609
  Transmission Date: 20160815
  Serious: Yes (Hospitalization)
  Sender: FDA-Public Use
  Company Number: US-GILEAD-2016-0210710

PATIENT
  Age: 54 Year
  Sex: Female
  Weight: 76.19 kg

DRUGS (10)
  1. LASIX [Concomitant]
     Active Substance: FUROSEMIDE
  2. LIPITOR [Concomitant]
     Active Substance: ATORVASTATIN CALCIUM
  3. TOPROL XL [Concomitant]
     Active Substance: METOPROLOL SUCCINATE
  4. METOLAZONE. [Concomitant]
     Active Substance: METOLAZONE
  5. DIGOXIN. [Concomitant]
     Active Substance: DIGOXIN
  6. REMODULIN [Concomitant]
     Active Substance: TREPROSTINIL
  7. ALDACTONE [Concomitant]
     Active Substance: SPIRONOLACTONE
  8. TORSEMIDE. [Suspect]
     Active Substance: TORSEMIDE
  9. AMBRISENTAN [Suspect]
     Active Substance: AMBRISENTAN
     Indication: PRODUCT USED FOR UNKNOWN INDICATION
     Dosage: 10 MG, QD
     Route: 048
     Dates: start: 20090324
  10. COUMADIN [Concomitant]
     Active Substance: WARFARIN SODIUM

REACTIONS (4)
  - Catheterisation cardiac [Recovered/Resolved]
  - Dizziness [Not Recovered/Not Resolved]
  - Haemoptysis [Recovered/Resolved]
  - Dizziness [Not Recovered/Not Resolved]

NARRATIVE: CASE EVENT DATE: 20160424
